FAERS Safety Report 23533394 (Version 1)
Quarter: 2024Q1

REPORT INFORMATION
  Report Type: Spontaneous
  Country: US (occurrence: None)
  Receive Date: 20240216
  Receipt Date: 20240216
  Transmission Date: 20240410
  Serious: Yes (Hospitalization)
  Sender: FDA-Public Use
  Company Number: None

PATIENT
  Sex: Male

DRUGS (1)
  1. DOVATO [Suspect]
     Active Substance: DOLUTEGRAVIR SODIUM\LAMIVUDINE
     Indication: HIV infection
     Dosage: OTHER STRENGTH : 50/300MG;?OTHER QUANTITY : 50/300MG;?FREQUENCY : DAILY;?
     Route: 048
     Dates: start: 202203

REACTIONS (2)
  - Emergency care [None]
  - Hospitalisation [None]
